FAERS Safety Report 22245868 (Version 1)
Quarter: 2023Q2

REPORT INFORMATION
  Report Type: Spontaneous
  Country: FR (occurrence: FR)
  Receive Date: 20230424
  Receipt Date: 20230424
  Transmission Date: 20230721
  Serious: Yes (Other)
  Sender: FDA-Public Use
  Company Number: FR-BAYER-2023A054839

PATIENT
  Age: 73 Year
  Sex: Female

DRUGS (1)
  1. ADEMPAS [Suspect]
     Active Substance: RIOCIGUAT
     Dosage: 2.5 MG, TID

REACTIONS (2)
  - Endarterectomy [None]
  - Off label use [None]

NARRATIVE: CASE EVENT DATE: 20230301
